FAERS Safety Report 9049386 (Version 9)
Quarter: 2013Q3

REPORT INFORMATION
  Report Type: Report from Study
  Country: JP (occurrence: JP)
  Receive Date: 20130205
  Receipt Date: 20130807
  Transmission Date: 20140515
  Serious: Yes (Hospitalization)
  Sender: FDA-Public Use
  Company Number: JP-ROCHE-1183372

PATIENT
  Age: 41 Year
  Sex: Female
  Weight: 69.9 kg

DRUGS (19)
  1. TRASTUZUMAB [Suspect]
     Indication: BREAST CANCER
     Dosage: LOADING DOSE
     Route: 042
     Dates: start: 20110629
  2. TRASTUZUMAB [Suspect]
     Dosage: DATE OF LAST DOSE (412.8MG) RECEIVED PRIOR TO SAE: 04/JAN/2013 (MAINTANENCE DOSE)
     Route: 042
  3. DOCETAXEL [Suspect]
     Indication: BREAST CANCER
     Dosage: DATE OF LAST DOSE (95.15 MG) RECEIVED PRIOR TO SAE: 04/JAN/2013
     Route: 042
     Dates: start: 20110629
  4. HYALEIN [Concomitant]
     Indication: PUNCTATE KERATITIS
     Route: 065
     Dates: start: 20120125
  5. DEXART [Concomitant]
     Route: 065
     Dates: start: 20110629
  6. DEXART [Concomitant]
     Route: 065
     Dates: start: 20110729
  7. KYTRIL [Concomitant]
     Route: 065
     Dates: start: 20110629
  8. KYTRIL [Concomitant]
     Route: 065
     Dates: start: 20110729
  9. DECADRON [Concomitant]
     Route: 065
     Dates: start: 20110729
  10. DECADRON [Concomitant]
     Route: 065
     Dates: start: 20110630
  11. SELBEX [Concomitant]
     Route: 065
     Dates: start: 20110729
  12. SELBEX [Concomitant]
     Route: 065
     Dates: start: 20110630
  13. MAGLAX [Concomitant]
     Indication: CONSTIPATION
     Route: 065
     Dates: start: 20110701
  14. PURSENNID [Concomitant]
     Indication: CONSTIPATION
     Route: 065
     Dates: start: 20110702
  15. LASIX [Concomitant]
     Indication: OEDEMA
     Route: 065
     Dates: start: 20110921
  16. ALDACTONE [Concomitant]
     Indication: OEDEMA
     Route: 065
     Dates: start: 20110921
  17. CRAVIT [Concomitant]
     Indication: NAIL INFECTION
     Route: 065
     Dates: start: 20120711
  18. GENTAMICIN OINTMENT [Concomitant]
     Indication: NAIL INFECTION
     Route: 065
     Dates: start: 20120711
  19. PETROLATUM [Concomitant]

REACTIONS (1)
  - Rectal haemorrhage [Recovered/Resolved]
